FAERS Safety Report 11197475 (Version 7)
Quarter: 2016Q1

REPORT INFORMATION
  Report Type: Spontaneous
  Country: US (occurrence: US)
  Receive Date: 20150617
  Receipt Date: 20160111
  Transmission Date: 20160525
  Serious: Yes (Death, Hospitalization, Other)
  Sender: FDA-Public Use
  Company Number: US-PFIZER INC-2015168725

PATIENT
  Age: 67 Year
  Sex: Male
  Weight: 88 kg

DRUGS (11)
  1. COMPAZINE [Concomitant]
     Active Substance: PROCHLORPERAZINE MALEATE
     Dosage: UNK
  2. LIPITOR [Concomitant]
     Active Substance: ATORVASTATIN CALCIUM
     Dosage: UNK
  3. XANAX [Concomitant]
     Active Substance: ALPRAZOLAM
     Dosage: UNK
  4. LOMOTIL [Concomitant]
     Active Substance: ATROPINE SULFATE\DIPHENOXYLATE HYDROCHLORIDE
     Dosage: UNK
  5. SUTENT [Suspect]
     Active Substance: SUNITINIB MALATE
     Dosage: 50 MG, CYCLIC (SUTENT, 50 MG 28 DAYS ON/14 DAYS OFF)
     Dates: start: 20150903, end: 20150929
  6. METOPROLOL. [Concomitant]
     Active Substance: METOPROLOL
     Dosage: UNK
  7. SUTENT [Suspect]
     Active Substance: SUNITINIB MALATE
     Indication: RENAL CANCER STAGE IV
     Dosage: 50 MG, DAILY 28 DAYS ON/14 DAYS OFF
     Dates: start: 20150505, end: 20150601
  8. SUTENT [Suspect]
     Active Substance: SUNITINIB MALATE
     Dosage: 50 MG, CYCLIC (28 DAYS ON/14 DAYS OFF)
     Dates: start: 20150727
  9. OXYCODONE [Concomitant]
     Active Substance: OXYCODONE
     Dosage: UNK
  10. POTASSIUM [Concomitant]
     Active Substance: POTASSIUM
     Dosage: UNK
  11. BISACODYL. [Concomitant]
     Active Substance: BISACODYL
     Dosage: UNK UNK, AS NEEDED

REACTIONS (15)
  - Death [Fatal]
  - Decreased appetite [Unknown]
  - Hepatitis [Unknown]
  - Dyspnoea [Unknown]
  - Pain in extremity [Unknown]
  - Peripheral swelling [Unknown]
  - Malaise [Unknown]
  - Pain [Unknown]
  - Diarrhoea [Unknown]
  - Dysgeusia [Unknown]
  - Hip fracture [Unknown]
  - Constipation [Unknown]
  - Fall [Unknown]
  - Fatigue [Unknown]
  - Nausea [Unknown]

NARRATIVE: CASE EVENT DATE: 2015
